FAERS Safety Report 9981855 (Version 1)
Quarter: 2014Q1

REPORT INFORMATION
  Report Type: Report from Study
  Country: US (occurrence: US)
  Receive Date: 20140307
  Receipt Date: 20140307
  Transmission Date: 20141002
  Serious: No
  Sender: FDA-Public Use
  Company Number: US-ABBVIE-13P-163-1179277-00

PATIENT
  Age: 31 Year
  Sex: Male
  Weight: 95.34 kg

DRUGS (19)
  1. HUMIRA [Suspect]
     Indication: PSORIASIS
     Route: 058
     Dates: start: 201310, end: 201311
  2. HUMIRA [Suspect]
     Indication: PSORIATIC ARTHROPATHY
  3. SALSALATE [Concomitant]
     Indication: PAIN
  4. AMLODIPINE [Concomitant]
     Indication: HYPERTENSION
  5. GABAPENTIN [Concomitant]
     Indication: PAIN
  6. GABAPENTIN [Concomitant]
     Indication: MENTAL DISORDER
  7. DOXAZOCIN [Concomitant]
     Indication: URINARY TRACT DISORDER
  8. DOXAZOCIN [Concomitant]
     Indication: HYPERTENSION
  9. LISINOPRIL [Concomitant]
     Indication: HYPERTENSION
  10. DIVALPROEX [Concomitant]
     Indication: ANXIETY
  11. DIVALPROEX [Concomitant]
     Indication: MENTAL DISORDER
  12. SERTRALINE [Concomitant]
     Indication: DEPRESSION
  13. HYDROXYZINE [Concomitant]
     Indication: ANXIETY
  14. HYDROXYZINE [Concomitant]
     Indication: FORMICATION
  15. METOPROLOL TARTRATE [Concomitant]
     Indication: HYPERTENSION
  16. RANITIDINE [Concomitant]
     Indication: GASTROOESOPHAGEAL REFLUX DISEASE
  17. RANITIDINE [Concomitant]
     Indication: NAUSEA
  18. OMEPRAZOLE [Concomitant]
     Indication: GASTROOESOPHAGEAL REFLUX DISEASE
  19. OMEPRAZOLE [Concomitant]
     Indication: VOMITING

REACTIONS (3)
  - Pain [Not Recovered/Not Resolved]
  - Malaise [Recovered/Resolved]
  - Paraesthesia [Recovered/Resolved]
